FAERS Safety Report 7117825-4 (Version None)
Quarter: 2010Q4

REPORT INFORMATION
  Report Type: 
  Country: None (occurrence: None)
  Receive Date: 20101118
  Receipt Date: 20101118
  Transmission Date: 20110411
  Serious: No
  Sender: FDA-Public Use
  Company Number: None

PATIENT
  Age: 70 Year
  Sex: Female
  Weight: 51.7101 kg

DRUGS (1)
  1. COLESTIPOL HYDROCHLORIDE [Suspect]
     Dosage: 1GM TAB (2) 2 TIMES DAILY
     Dates: start: 20101028

REACTIONS (6)
  - ABASIA [None]
  - BLOOD PRESSURE INCREASED [None]
  - DIZZINESS [None]
  - DYSSTASIA [None]
  - HEART RATE INCREASED [None]
  - HOT FLUSH [None]
